FAERS Safety Report 18988270 (Version 2)
Quarter: 2022Q2

REPORT INFORMATION
  Report Type: Spontaneous
  Country: FR (occurrence: FR)
  Receive Date: 20210309
  Receipt Date: 20220411
  Transmission Date: 20220721
  Serious: Yes (Hospitalization, Other)
  Sender: FDA-Public Use
  Company Number: None

PATIENT
  Age: 36 Year
  Sex: Male

DRUGS (5)
  1. ALPRAZOLAM [Suspect]
     Active Substance: ALPRAZOLAM
     Indication: Product used for unknown indication
     Dosage: 0.5 MILLIGRAM, QD, 0.25MG X 2
     Route: 048
     Dates: start: 20210116, end: 20210116
  2. BROMAZEPAM [Suspect]
     Active Substance: BROMAZEPAM
     Indication: Product used for unknown indication
     Dosage: 96 MILLIGRAM, QD, 96 MILLIGRAM, 6MG X16
     Route: 048
     Dates: start: 20210116, end: 20210116
  3. OXAZEPAM [Suspect]
     Active Substance: OXAZEPAM
     Indication: Product used for unknown indication
     Dosage: 400 MILLIGRAM, QD, 50MG X8
     Route: 048
     Dates: start: 20210116, end: 20210116
  4. VALIUM [Suspect]
     Active Substance: DIAZEPAM
     Indication: Product used for unknown indication
     Dosage: 20 MILLIGRAM, QD, 10 MG X2
     Route: 048
     Dates: start: 20210116, end: 20210116
  5. FLUMAZENIL [Suspect]
     Active Substance: FLUMAZENIL
     Indication: Product used for unknown indication
     Dosage: 0.2 MILLIGRAM
     Dates: start: 20210116

REACTIONS (5)
  - Somnolence [Recovered/Resolved]
  - Suicide attempt [Unknown]
  - Malaise [Unknown]
  - Syncope [Unknown]
  - Agitation [Unknown]

NARRATIVE: CASE EVENT DATE: 20210116
